FAERS Safety Report 8021245 (Version 9)
Quarter: 2013Q3

REPORT INFORMATION
  Report Type: Spontaneous
  Country: US (occurrence: US)
  Receive Date: 20110705
  Receipt Date: 20130920
  Transmission Date: 20140515
  Serious: Yes (Hospitalization, Other)
  Sender: FDA-Public Use
  Company Number: US-ROCHE-786757

PATIENT
  Age: 30 Year
  Sex: Female
  Weight: 43.1 kg

DRUGS (2)
  1. ACCUTANE [Suspect]
     Indication: ACNE CYSTIC
     Route: 048
     Dates: start: 19980911, end: 199904
  2. IBUPROFEN [Concomitant]

REACTIONS (13)
  - Crohn^s disease [Unknown]
  - Intestinal haemorrhage [Unknown]
  - Colitis ulcerative [Unknown]
  - Inflammatory bowel disease [Unknown]
  - Fistula [Unknown]
  - Gastrointestinal ulcer [Unknown]
  - Intestinal ulcer [Unknown]
  - Injury [Unknown]
  - Anal fissure [Unknown]
  - Perirectal abscess [Unknown]
  - Depression [Unknown]
  - Dry skin [Unknown]
  - Aphthous stomatitis [Unknown]
